FAERS Safety Report 11827887 (Version 1)
Quarter: 2015Q4

REPORT INFORMATION
  Report Type: Spontaneous
  Country: GB (occurrence: GB)
  Receive Date: 20151211
  Receipt Date: 20151211
  Transmission Date: 20160305
  Serious: Yes (Other)
  Sender: FDA-Public Use
  Company Number: GB-IGI LABORATORIES, INC.-1045386

PATIENT

DRUGS (4)
  1. SODIUM CHLORIDE. [Suspect]
     Active Substance: SODIUM CHLORIDE
     Route: 065
  2. ZANTAC [Suspect]
     Active Substance: RANITIDINE HYDROCHLORIDE
     Route: 065
  3. PIRITON [Suspect]
     Active Substance: CHLORPHENIRAMINE MALEATE
     Route: 065
  4. PACLITAXEL. [Suspect]
     Active Substance: PACLITAXEL
     Route: 065

REACTIONS (7)
  - Hypertension [Unknown]
  - Feeling hot [Unknown]
  - Hypersensitivity [Unknown]
  - Dyspnoea [Unknown]
  - Hot flush [Unknown]
  - Presyncope [Unknown]
  - Pain [Unknown]

NARRATIVE: CASE EVENT DATE: 20150917
